FAERS Safety Report 7110104-0 (Version None)
Quarter: 2010Q4

REPORT INFORMATION
  Report Type: 
  Country: None (occurrence: None)
  Receive Date: 20101112
  Receipt Date: 20101027
  Transmission Date: 20110411
  Serious: Yes (Hospitalization, Disabling)
  Sender: FDA-Public Use
  Company Number: 1-17293678

PATIENT
  Age: 56 Year
  Sex: Male

DRUGS (7)
  1. QUININE SULFATE [Suspect]
     Indication: MUSCLE SPASMS
     Dosage: AS NEEDED,ORAL
     Dates: start: 20040723
  2. PREDNISONE TAB [Suspect]
     Indication: IDIOPATHIC THROMBOCYTOPENIC PURPURA
     Dosage: ORAL
     Dates: start: 20040801
  3. ORAMORPH SR [Concomitant]
  4. DOXAZOSIN [Concomitant]
  5. ATENOLOL [Concomitant]
  6. VOLTAREN [Concomitant]
  7. NAPROXEN [Concomitant]

REACTIONS (19)
  - ANXIETY [None]
  - ARRHYTHMIA [None]
  - ARTERIAL STENOSIS [None]
  - ARTERIOSCLEROSIS [None]
  - ATRIAL FIBRILLATION [None]
  - ATRIOVENTRICULAR BLOCK [None]
  - CONDITION AGGRAVATED [None]
  - DIABETES MELLITUS [None]
  - DRUG HYPERSENSITIVITY [None]
  - EMOTIONAL DISTRESS [None]
  - FEAR [None]
  - GRIEF REACTION [None]
  - HYPERGLYCAEMIA [None]
  - IDIOPATHIC THROMBOCYTOPENIC PURPURA [None]
  - MENTAL DISORDER [None]
  - NERVOUSNESS [None]
  - PAIN [None]
  - SPINAL COLUMN STENOSIS [None]
  - UNEVALUABLE EVENT [None]
